FAERS Safety Report 26186372 (Version 1)
Quarter: 2025Q4

REPORT INFORMATION
  Report Type: Spontaneous
  Country: US (occurrence: None)
  Receive Date: 20251221
  Receipt Date: 20251221
  Transmission Date: 20260118
  Serious: Yes (Other)
  Sender: FDA-CTU
  Company Number: None

PATIENT
  Age: 62 Year
  Sex: Female

DRUGS (2)
  1. COSMETICS [Suspect]
     Active Substance: COSMETICS
     Indication: Dry skin
     Dosage: OTHER QUANTITY : 1 10 FL OZ.(296 ML);
     Route: 061
     Dates: start: 20251221, end: 20251221
  2. COSMETICS [Suspect]
     Active Substance: COSMETICS

REACTIONS (3)
  - Application site pain [None]
  - Application site discolouration [None]
  - Emotional disorder [None]

NARRATIVE: CASE EVENT DATE: 20251221
